FAERS Safety Report 8578112-0 (Version None)
Quarter: 2012Q3

REPORT INFORMATION
  Report Type: 
  Country: None (occurrence: None)
  Receive Date: 20120808
  Receipt Date: 20120806
  Transmission Date: 20120928
  Serious: No
  Sender: FDA-Public Use
  Company Number: PHFR2012GB004120

PATIENT
  Sex: Male

DRUGS (2)
  1. CLOZARIL [Suspect]
     Indication: SCHIZOPHRENIA
     Route: 048
     Dates: start: 20090902
  2. CLOZARIL [Suspect]
     Dosage: 500 MG, QD
     Dates: start: 20120712

REACTIONS (1)
  - TREATMENT NONCOMPLIANCE [None]
